FAERS Safety Report 10757198 (Version 2)
Quarter: 2015Q1

REPORT INFORMATION
  Report Type: Spontaneous
  Country: GB (occurrence: None)
  Receive Date: 20150130
  Receipt Date: 20150209
  Transmission Date: 20150721
  Serious: Yes (Death, Other)
  Sender: FDA-Public Use
  Company Number: 2015SGN00082

PATIENT
  Age: 25 Year
  Sex: Female
  Weight: 56 kg

DRUGS (5)
  1. ADCETRIS [Suspect]
     Active Substance: BRENTUXIMAB VEDOTIN
     Indication: ANAPLASTIC LARGE-CELL LYMPHOMA
  2. DALTEPARIN (DALTEPARIN SODIUM) [Concomitant]
  3. ACYCLOVIR. [Concomitant]
     Active Substance: ACYCLOVIR
  4. CO-TRIMOXAZOLE (SULFAMETHOXAZOLE, TRIMETHOPRIM) [Concomitant]
  5. ALFENTANIL [Concomitant]
     Active Substance: ALFENTANIL

REACTIONS (3)
  - Drug ineffective [None]
  - Malignant neoplasm progression [None]
  - Anaplastic large-cell lymphoma [None]

NARRATIVE: CASE EVENT DATE: 20150102
